FAERS Safety Report 4425779-4 (Version None)
Quarter: 2004Q3

REPORT INFORMATION
  Report Type: 
  Country: None (occurrence: None)
  Receive Date: 20040810
  Receipt Date: 20040729
  Transmission Date: 20050211
  Serious: Yes (Hospitalization)
  Sender: FDA-Public Use
  Company Number: 2004EU001395

PATIENT
  Age: 63 Year
  Sex: Male

DRUGS (3)
  1. FK506 (TACROLIMUS) [Suspect]
     Indication: RENAL TRANSPLANT
     Dosage: 8.00 MG, ORAL
     Route: 048
     Dates: start: 20040512, end: 20040702
  2. CELLCEPT [Concomitant]
  3. PREDNISONE TAB [Concomitant]

REACTIONS (9)
  - AZOTAEMIA [None]
  - DRUG INEFFECTIVE [None]
  - GENERAL PHYSICAL HEALTH DETERIORATION [None]
  - HAEMODIALYSIS [None]
  - KIDNEY TRANSPLANT REJECTION [None]
  - LOSS OF CONSCIOUSNESS [None]
  - PERITONITIS [None]
  - PSYCHOTIC DISORDER [None]
  - RESPIRATORY FAILURE [None]
